FAERS Safety Report 5039128-4 (Version None)
Quarter: 2006Q2

REPORT INFORMATION
  Report Type: 
  Country: None (occurrence: None)
  Receive Date: 20060629
  Receipt Date: 20050714
  Transmission Date: 20061013
  Serious: Yes (Other)
  Sender: FDA-Public Use
  Company Number: US-GLAXOSMITHKLINE-A0566541A

PATIENT
  Age: 49 Year
  Sex: Male

DRUGS (5)
  1. PAXIL [Suspect]
     Indication: DEPRESSION
     Route: 048
     Dates: start: 19960101
  2. TENORMIN [Concomitant]
  3. PLAVIX [Concomitant]
  4. ALTACE [Concomitant]
  5. ZOCOR [Concomitant]

REACTIONS (10)
  - ANGER [None]
  - CONFUSIONAL STATE [None]
  - DEPENDENCE [None]
  - DEPRESSION [None]
  - DRUG INEFFECTIVE [None]
  - DRUG WITHDRAWAL SYNDROME [None]
  - IMPATIENCE [None]
  - INSOMNIA [None]
  - LIBIDO DECREASED [None]
  - SUICIDAL IDEATION [None]
